FAERS Safety Report 11500023 (Version 1)
Quarter: 2015Q3

REPORT INFORMATION
  Report Type: Spontaneous
  Country: US (occurrence: None)
  Receive Date: 20150911
  Receipt Date: 20150911
  Transmission Date: 20151125
  Serious: No
  Sender: FDA-Public Use
  Company Number: None

PATIENT
  Age: 5 Year
  Sex: Male

DRUGS (8)
  1. PULMAYINE [Concomitant]
  2. TOBRAMYCIN 100MG/5ML NOVARTIS [Suspect]
     Active Substance: TOBRAMYCIN
     Indication: CYSTIC FIBROSIS
     Dosage: 300MG/5ML?BID?INHALATION
     Route: 055
     Dates: start: 20150109
  3. FLOVANT [Concomitant]
  4. BETHKIS [Suspect]
     Active Substance: TOBRAMYCIN
     Indication: CYSTIC FIBROSIS
     Dosage: 300MG/4ML?BID?INHALATION
     Route: 055
     Dates: start: 20150910
  5. ALBUTROL [Concomitant]
  6. UREON [Concomitant]
  7. POTASSIUM [Concomitant]
     Active Substance: POTASSIUM
  8. NORONH [Concomitant]

REACTIONS (1)
  - Malaise [None]

NARRATIVE: CASE EVENT DATE: 20150908
